FAERS Safety Report 10055187 (Version 1)
Quarter: 2014Q2

REPORT INFORMATION
  Report Type: Spontaneous
  Country: US (occurrence: US)
  Receive Date: 20140402
  Receipt Date: 20140402
  Transmission Date: 20141212
  Serious: Yes (Death)
  Sender: FDA-Public Use
  Company Number: US-ROCHE-1376687

PATIENT
  Sex: Male

DRUGS (1)
  1. XELODA [Suspect]
     Indication: OESOPHAGEAL CARCINOMA
     Dosage: 500 MG TAKE 3 TWICE IN DAY, 14 DAYS ON AND 7 DAYS OFF.
     Route: 048
     Dates: start: 20140206

REACTIONS (1)
  - Death [Fatal]
